FAERS Safety Report 7928679-8 (Version None)
Quarter: 2011Q4

REPORT INFORMATION
  Report Type: 
  Country: None (occurrence: None)
  Receive Date: 20111118
  Receipt Date: 20111107
  Transmission Date: 20120403
  Serious: Yes (Other)
  Sender: FDA-Public Use
  Company Number: FR-MYLANLABS-2011S1022987

PATIENT
  Age: 48 Year
  Sex: Female

DRUGS (2)
  1. DULOXETIME HYDROCHLORIDE [Interacting]
     Route: 065
     Dates: start: 20070101
  2. TAMOXIFEN CITRATE [Suspect]
     Indication: BREAST CANCER
     Route: 065
     Dates: start: 20070601

REACTIONS (3)
  - DRUG INTERACTION [None]
  - HOT FLUSH [None]
  - BREAST CANCER RECURRENT [None]
